FAERS Safety Report 6370934-X (Version None)
Quarter: 2009Q3

REPORT INFORMATION
  Report Type: 
  Country: None (occurrence: None)
  Receive Date: 20090923
  Receipt Date: 20070512
  Transmission Date: 20100115
  Serious: Yes (Other)
  Sender: FDA-Public Use
  Company Number: US-ASTRAZENECA-2006UW23100

PATIENT
  Age: 15240 Day
  Sex: Female
  Weight: 93 kg

DRUGS (9)
  1. SEROQUEL [Suspect]
     Indication: SLEEP DISORDER
     Route: 048
     Dates: start: 19970101
  2. SEROQUEL [Suspect]
     Dosage: 25 MG ONE TO TWO TABLETS AT BED TIME, AS NEEDED
     Route: 048
     Dates: start: 20010221
  3. RISPERDAL [Suspect]
  4. ZYPREXA [Concomitant]
  5. PAXIL [Concomitant]
     Route: 048
     Dates: start: 20010206
  6. GEMFIBROZIL [Concomitant]
     Route: 048
     Dates: start: 20010323
  7. METFORMIN HCL [Concomitant]
     Dosage: 500 MG PO Q AM AND 1000 MG PO Q PM
     Route: 048
     Dates: start: 20011015
  8. LOTENSIN [Concomitant]
     Route: 048
     Dates: start: 20030311
  9. LEXAPRO [Concomitant]
     Dates: start: 20060901

REACTIONS (3)
  - DIABETES MELLITUS [None]
  - TARDIVE DYSKINESIA [None]
  - TYPE 2 DIABETES MELLITUS [None]
